FAERS Safety Report 10548549 (Version 2)
Quarter: 2015Q1

REPORT INFORMATION
  Report Type: Report from Study
  Country: CA (occurrence: CA)
  Receive Date: 20141028
  Receipt Date: 20150129
  Transmission Date: 20150720
  Serious: Yes (Hospitalization, Other)
  Sender: FDA-Public Use
  Company Number: CA-SA-2014SA143377

PATIENT
  Age: 50 Year
  Sex: Female

DRUGS (15)
  1. TAXOTERE [Suspect]
     Active Substance: DOCETAXEL
     Indication: BREAST CANCER METASTATIC
     Dosage: FORM: SOLUTION INTRAVENOUS
     Route: 042
     Dates: start: 201207
  2. PERTUZUMAB [Suspect]
     Active Substance: PERTUZUMAB
     Indication: BREAST CANCER METASTATIC
     Route: 042
     Dates: start: 20130730, end: 20140128
  3. TAXOL [Concomitant]
     Active Substance: PACLITAXEL
     Dosage: SOLUTION, INTRAVENOUS
     Dates: start: 201307, end: 201310
  4. ATORVASTATIN CALCIUM. [Concomitant]
     Active Substance: ATORVASTATIN CALCIUM
  5. BISOPROLOL [Concomitant]
     Active Substance: BISOPROLOL
  6. TRASTUZUMAB [Suspect]
     Active Substance: TRASTUZUMAB
     Indication: BREAST CANCER METASTATIC
     Route: 042
     Dates: start: 201207
  7. KADCYLA [Suspect]
     Active Substance: ADO-TRASTUZUMAB EMTANSINE
     Indication: BREAST CANCER METASTATIC
     Dosage: STRENGTH: 100 MG AND 160 MG
     Route: 042
     Dates: start: 20140304
  8. ALL OTHER THERAPEUTIC PRODUCTS [Concomitant]
     Active Substance: UNSPECIFIED INGREDIENT
  9. KADCYLA [Suspect]
     Active Substance: ADO-TRASTUZUMAB EMTANSINE
     Indication: BREAST CANCER METASTATIC
     Dosage: STRENGTH: 100 MG AND 160 MG
     Route: 042
     Dates: start: 20131203, end: 20140325
  10. VINORELBINE TARTRATE. [Suspect]
     Active Substance: VINORELBINE TARTRATE
     Indication: BREAST CANCER METASTATIC
     Route: 042
     Dates: start: 201205
  11. LETROZOLE. [Concomitant]
     Active Substance: LETROZOLE
  12. PERINDOPRIL [Concomitant]
     Active Substance: PERINDOPRIL
  13. FASLODEX [Concomitant]
     Active Substance: FULVESTRANT
  14. IRON [Concomitant]
     Active Substance: IRON
  15. SYNTHROID [Concomitant]
     Active Substance: LEVOTHYROXINE SODIUM

REACTIONS (11)
  - Fatigue [Not Recovered/Not Resolved]
  - Hepatic pain [Unknown]
  - Diarrhoea [Not Recovered/Not Resolved]
  - Metastases to central nervous system [Not Recovered/Not Resolved]
  - Vomiting [Unknown]
  - Dehydration [Unknown]
  - Localised infection [Recovered/Resolved]
  - Dysgeusia [Not Recovered/Not Resolved]
  - Ejection fraction decreased [Not Recovered/Not Resolved]
  - Disease progression [Not Recovered/Not Resolved]
  - Nausea [Unknown]

NARRATIVE: CASE EVENT DATE: 201208
